FAERS Safety Report 4440630-4 (Version None)
Quarter: 2004Q3

REPORT INFORMATION
  Report Type: 
  Country: None (occurrence: None)
  Receive Date: 20040901
  Receipt Date: 20040901
  Transmission Date: 20050211
  Serious: Yes (Hospitalization)
  Sender: FDA-Public Use
  Company Number: None

PATIENT
  Sex: Male
  Weight: 97.5234 kg

DRUGS (2)
  1. NPH INSULIN [Suspect]
     Indication: DIABETES MELLITUS
     Dosage: 20 UNITS SQ Q PM [PRIOR TO ADMISSION]
     Route: 058
  2. ALTACE [Concomitant]

REACTIONS (3)
  - BLOOD GLUCOSE DECREASED [None]
  - MENTAL STATUS CHANGES [None]
  - SPEECH DISORDER [None]
